FAERS Safety Report 9378321 (Version 1)
Quarter: 2013Q3

REPORT INFORMATION
  Report Type: Spontaneous
  Country: US (occurrence: US)
  Receive Date: 20130701
  Receipt Date: 20130701
  Transmission Date: 20140515
  Serious: No
  Sender: FDA-Public Use
  Company Number: US-US-EMD SERONO, INC.-7086305

PATIENT
  Age: 26 Year
  Sex: Female
  Weight: 65 kg

DRUGS (4)
  1. REBIF [Suspect]
     Indication: MULTIPLE SCLEROSIS
     Dates: start: 20110912, end: 20110926
  2. REBIF [Suspect]
     Route: 058
     Dates: start: 20110926
  3. REBIF [Suspect]
     Route: 058
     Dates: start: 201110, end: 20130128
  4. ZOLOFT                             /01011401/ [Concomitant]
     Indication: DEPRESSION
     Dates: start: 201104

REACTIONS (1)
  - Pulse abnormal [Recovered/Resolved]
